FAERS Safety Report 6759262-8 (Version None)
Quarter: 2010Q2

REPORT INFORMATION
  Report Type: 
  Country: None (occurrence: None)
  Receive Date: 20100607
  Receipt Date: 20100528
  Transmission Date: 20101027
  Serious: Yes (Other)
  Sender: FDA-Public Use
  Company Number: PH-ABBOTT-10P-128-0643376-00

PATIENT
  Age: 64 Year
  Sex: Female
  Weight: 39 kg

DRUGS (2)
  1. SYNTHROID [Suspect]
     Indication: HYPERTHYROIDISM
     Route: 050
     Dates: start: 19900101, end: 20100409
  2. SYNTHROID [Suspect]
     Route: 048
     Dates: start: 20100423

REACTIONS (3)
  - DRUG INEFFECTIVE [None]
  - INTESTINAL OBSTRUCTION [None]
  - WRONG TECHNIQUE IN DRUG USAGE PROCESS [None]
